FAERS Safety Report 17077276 (Version 2)
Quarter: 2019Q4

REPORT INFORMATION
  Report Type: Spontaneous
  Country: US (occurrence: US)
  Receive Date: 20191126
  Receipt Date: 20191202
  Transmission Date: 20200122
  Serious: No
  Sender: FDA-Public Use
  Company Number: US-PFIZER INC-2019510019

PATIENT
  Sex: Male

DRUGS (1)
  1. EFFEXOR [Suspect]
     Active Substance: VENLAFAXINE HYDROCHLORIDE
     Dosage: UNK

REACTIONS (6)
  - Quality of life decreased [Unknown]
  - Paraesthesia [Unknown]
  - Muscle spasms [Unknown]
  - Vertigo [Unknown]
  - Nausea [Unknown]
  - Withdrawal syndrome [Unknown]
